FAERS Safety Report 4661060-6 (Version None)
Quarter: 2005Q2

REPORT INFORMATION
  Report Type: 
  Country: None (occurrence: None)
  Receive Date: 20050511
  Receipt Date: 20050502
  Transmission Date: 20051028
  Serious: Yes (Other)
  Sender: FDA-Public Use
  Company Number: S05-USA-02309-01

PATIENT
  Age: 78 Year
  Sex: Male

DRUGS (4)
  1. LEXAPRO [Suspect]
     Indication: DEPRESSION
     Dosage: 10 MG QD PO
     Route: 048
     Dates: start: 20040501
  2. DIOVAN [Concomitant]
  3. SULAR [Concomitant]
  4. DICLOFENAC [Concomitant]

REACTIONS (2)
  - AMNESIA [None]
  - CONVULSION [None]
